FAERS Safety Report 9331142 (Version 1)
Quarter: 2013Q2

REPORT INFORMATION
  Report Type: Spontaneous
  Country: BE (occurrence: BE)
  Receive Date: 20130605
  Receipt Date: 20130605
  Transmission Date: 20140414
  Serious: Yes (Disabling)
  Sender: FDA-Public Use
  Company Number: BE-B.I. PHARMACEUTICALS,INC./RIDGEFIELD-2013-BL-00085BL

PATIENT
  Age: 80 Year
  Sex: Female
  Weight: 78.4 kg

DRUGS (11)
  1. PRADAXA [Suspect]
     Indication: ATRIAL FIBRILLATION
     Dosage: 220 MG
     Route: 048
  2. ZOCOR [Concomitant]
     Indication: HYPERCHOLESTEROLAEMIA
  3. BELSAR [Concomitant]
     Indication: HYPERTENSION
  4. KERLONE [Concomitant]
     Indication: HYPERTENSION
  5. TILDIEM RETARD [Concomitant]
     Indication: HYPERTENSION
  6. PANTOMED [Concomitant]
  7. ZADITEN RETARD [Concomitant]
     Indication: HOUSE DUST ALLERGY
  8. CORUNO [Concomitant]
     Indication: ANGINA PECTORIS
  9. CALCIUM CARBONATE [Concomitant]
     Indication: OSTEOPOROSIS
  10. ASAFLOW [Concomitant]
     Indication: ATRIAL FIBRILLATION
  11. FOSAMAX [Concomitant]
     Indication: OSTEOPOROSIS

REACTIONS (5)
  - Abdominal distension [Unknown]
  - Depression [Not Recovered/Not Resolved]
  - Fatigue [Not Recovered/Not Resolved]
  - Breast enlargement [Unknown]
  - Local swelling [Unknown]
